FAERS Safety Report 7241620 (Version 4)
Quarter: 2013Q4

REPORT INFORMATION
  Report Type: Spontaneous
  Country: US (occurrence: US)
  Receive Date: 20100111
  Receipt Date: 20131118
  Transmission Date: 20140711
  Serious: Yes (Hospitalization)
  Sender: FDA-Public Use
  Company Number: US-BAYER-201010272NA

PATIENT
  Age: 27 Year
  Sex: Female
  Weight: 59 kg

DRUGS (7)
  1. YASMIN [Suspect]
     Route: 048
     Dates: start: 200512, end: 200605
  2. OCELLA [Suspect]
     Dosage: UNK
     Route: 048
     Dates: start: 20080904, end: 200812
  3. ALBUTEROL [Concomitant]
     Dosage: UNK UNK, PRN
     Route: 045
  4. ADVAIR [Concomitant]
     Dosage: UNK UNK, QD
     Route: 045
  5. ACIPHEX [Concomitant]
     Indication: ABDOMINAL PAIN UPPER
     Dosage: UNK
     Dates: start: 20070104
  6. PROTONIX [Concomitant]
     Indication: ABDOMINAL PAIN
     Dosage: UNK
     Route: 042
     Dates: start: 20070603
  7. PROTON PUMP INHIBITORS [Concomitant]
     Dosage: UNK
     Dates: start: 20070603

REACTIONS (8)
  - Cholelithiasis [None]
  - Cholecystitis [None]
  - Abdominal pain [None]
  - Abdominal pain upper [None]
  - Nausea [None]
  - Vomiting [None]
  - Diarrhoea [None]
  - Heart rate irregular [Unknown]
